FAERS Safety Report 7099061-3 (Version None)
Quarter: 2010Q4

REPORT INFORMATION
  Report Type: 
  Country: None (occurrence: None)
  Receive Date: 20101112
  Receipt Date: 20101108
  Transmission Date: 20110411
  Serious: Yes (Hospitalization, Congenital Anomaly)
  Sender: FDA-Public Use
  Company Number: A0679840A

PATIENT
  Sex: Male
  Weight: 3.2 kg

DRUGS (3)
  1. PAXIL [Suspect]
     Indication: ANXIETY
     Dosage: 10MG PER DAY
     Dates: start: 20020101, end: 20030101
  2. PRENATAL VITAMINS [Concomitant]
  3. XOPENEX [Concomitant]

REACTIONS (4)
  - BICUSPID AORTIC VALVE [None]
  - CARDIAC FAILURE [None]
  - COARCTATION OF THE AORTA [None]
  - DRUG EXPOSURE DURING PREGNANCY [None]
